FAERS Safety Report 6969458-8 (Version None)
Quarter: 2010Q3

REPORT INFORMATION
  Report Type: 
  Country: None (occurrence: None)
  Receive Date: 20100902
  Receipt Date: 20100823
  Transmission Date: 20110219
  Serious: Yes (Disabling)
  Sender: FDA-Public Use
  Company Number: 675723

PATIENT
  Sex: Male

DRUGS (4)
  1. VANCOMYCIN HCL [Suspect]
     Indication: INJECTION SITE ABSCESS
     Dosage: EVERY 24 HOURS INTRAVENOUS
     Route: 042
     Dates: start: 20070204, end: 20070309
  2. VANCOMYCIN HCL [Suspect]
     Indication: STAPHYLOCOCCAL INFECTION
     Dosage: EVERY 24 HOURS INTRAVENOUS
     Route: 042
     Dates: start: 20070204, end: 20070309
  3. HEPARIN SODIUM INJECTION [Concomitant]
  4. SODIUM CHLORIDE INJ (SODIUM CHLORIDE) [Concomitant]

REACTIONS (7)
  - ABASIA [None]
  - BALANCE DISORDER [None]
  - DEAFNESS UNILATERAL [None]
  - EAR DISCOMFORT [None]
  - HEMIPLEGIA [None]
  - HYPOACUSIS [None]
  - VERTIGO [None]
